FAERS Safety Report 8675544 (Version 4)
Quarter: 2013Q1

REPORT INFORMATION
  Report Type: Spontaneous
  Country: US (occurrence: US)
  Receive Date: 20120720
  Receipt Date: 20130122
  Transmission Date: 20140127
  Serious: Yes (Hospitalization, Other)
  Sender: FDA-Public Use
  Company Number: US-009507513-2012SP006666

PATIENT
  Sex: 0

DRUGS (1)
  1. NUVARING [Suspect]
     Indication: CONTRACEPTION
     Dosage: UNK
     Route: 067
     Dates: start: 200701, end: 200702

REACTIONS (10)
  - Pulmonary embolism [Unknown]
  - Deep vein thrombosis [Unknown]
  - Dysfunctional uterine bleeding [Unknown]
  - Dyspnoea [Unknown]
  - Asthenia [Unknown]
  - Arthropod bite [Unknown]
  - Deep vein thrombosis [Unknown]
  - Dyspnoea [Unknown]
  - Varicose vein [Unknown]
  - Asthma [Unknown]
